FAERS Safety Report 5177376-3 (Version None)
Quarter: 2006Q4

REPORT INFORMATION
  Report Type: 
  Country: None (occurrence: None)
  Receive Date: 20061218
  Receipt Date: 20060721
  Transmission Date: 20070319
  Serious: Yes (Hospitalization, Other)
  Sender: FDA-Public Use
  Company Number: CA-ELI_LILLY_AND_COMPANY-CA200607004045

PATIENT
  Age: 5 Year
  Sex: Male
  Weight: 30.6 kg

DRUGS (3)
  1. SOMATROPIN [Suspect]
     Indication: GROWTH HORMONE DEFICIENCY
     Dosage: 0.5 MG, DAILY (1/D)
     Dates: start: 20010920
  2. CORTEF [Concomitant]
     Indication: ADDISON'S DISEASE
     Dates: start: 20000201
  3. SYNTHROID [Concomitant]
     Dates: start: 20000728

REACTIONS (5)
  - ADENOIDAL HYPERTROPHY [None]
  - EPISTAXIS [None]
  - NASAL SEPTUM DISORDER [None]
  - OXYGEN SATURATION DECREASED [None]
  - SINUS BRADYCARDIA [None]
